FAERS Safety Report 6793189-0 (Version None)
Quarter: 2010Q2

REPORT INFORMATION
  Report Type: 
  Country: None (occurrence: None)
  Receive Date: 20100624
  Receipt Date: 20090824
  Transmission Date: 20101027
  Serious: Yes (Other)
  Sender: FDA-Public Use
  Company Number: US-MYLANLABS-2009S1012832

PATIENT
  Age: 71 Year
  Sex: Female

DRUGS (20)
  1. CLOZAPINE [Suspect]
     Indication: SCHIZOPHRENIA
     Route: 048
     Dates: start: 20090701
  2. CLOZAPINE [Suspect]
     Indication: DEMENTIA
     Route: 048
     Dates: start: 20090701
  3. CLOZAPINE [Suspect]
     Route: 048
     Dates: start: 20090701
  4. CLOZAPINE [Suspect]
     Route: 048
     Dates: start: 20090701
  5. CLOZAPINE [Suspect]
     Route: 048
     Dates: start: 20080903, end: 20090715
  6. CLOZAPINE [Suspect]
     Route: 048
     Dates: start: 20080903, end: 20090715
  7. CLOZAPINE [Suspect]
     Route: 048
     Dates: start: 20080903, end: 20090715
  8. CLOZAPINE [Suspect]
     Route: 048
     Dates: start: 20080903, end: 20090715
  9. ACTOS [Concomitant]
  10. FERROUS SULFATE TAB [Concomitant]
  11. OMEPRAZOLE [Concomitant]
  12. TRAMADOL HCL [Concomitant]
  13. MULTI-VITAMIN [Concomitant]
  14. NOVOLOG [Concomitant]
     Dosage: SLIDING SCALE
  15. GLIPIZIDE [Concomitant]
     Dosage: AFTER MEALS
  16. CALCIUM CARBONATE [Concomitant]
  17. VITAMIN D3 [Concomitant]
  18. FUROSEMIDE [Concomitant]
  19. SERTRALINE HCL [Concomitant]
  20. GABAPENTIN [Concomitant]

REACTIONS (2)
  - GRANULOCYTOPENIA [None]
  - WHITE BLOOD CELL COUNT DECREASED [None]
